FAERS Safety Report 17654724 (Version 1)
Quarter: 2020Q2

REPORT INFORMATION
  Report Type: Spontaneous
  Country: FR (occurrence: FR)
  Receive Date: 20200410
  Receipt Date: 20200410
  Transmission Date: 20200713
  Serious: Yes (Death)
  Sender: FDA-Public Use
  Company Number: FR-TEVA-2020-FR-1221714

PATIENT
  Age: 59 Year
  Sex: Female

DRUGS (2)
  1. BROMAZEPAM [Suspect]
     Active Substance: BROMAZEPAM
     Dosage: NR
     Route: 065
  2. TRAMADOL BASE [Suspect]
     Active Substance: TRAMADOL
     Dosage: NR
     Route: 065

REACTIONS (1)
  - Death [Fatal]
